FAERS Safety Report 11451750 (Version 1)
Quarter: 2015Q3

REPORT INFORMATION
  Report Type: Report from Study
  Country: GB (occurrence: GB)
  Receive Date: 20150903
  Receipt Date: 20150903
  Transmission Date: 20151125
  Serious: Yes (Death)
  Sender: FDA-Public Use
  Company Number: GB-ROCHE-1629956

PATIENT

DRUGS (1)
  1. RITUXIMAB [Suspect]
     Active Substance: RITUXIMAB
     Indication: SYSTEMIC LUPUS ERYTHEMATOSUS
     Dosage: EACH CYCLE CONSISTED 2 INFUSIONS OF 1000MG, REPEATED ON CLINICAL RELAPSE
     Route: 042

REACTIONS (1)
  - Multi-organ failure [Fatal]
